FAERS Safety Report 24820386 (Version 1)
Quarter: 2025Q1

REPORT INFORMATION
  Report Type: Spontaneous
  Country: US (occurrence: US)
  Receive Date: 20250108
  Receipt Date: 20250108
  Transmission Date: 20250409
  Serious: No
  Sender: Harrow Health
  Company Number: US-IMP-2024001190

PATIENT

DRUGS (2)
  1. ILEVRO [Suspect]
     Active Substance: NEPAFENAC
     Indication: Cataract operation
     Route: 047
     Dates: start: 20241120
  2. ILEVRO [Suspect]
     Active Substance: NEPAFENAC
     Indication: Cataract operation
     Route: 047
     Dates: start: 20241210

REACTIONS (4)
  - Visual impairment [Unknown]
  - Vision blurred [Unknown]
  - Product dose omission issue [Unknown]
  - Off label use [Unknown]

NARRATIVE: CASE EVENT DATE: 20241201
